FAERS Safety Report 12694309 (Version 1)
Quarter: 2016Q3

REPORT INFORMATION
  Report Type: Spontaneous
  Country: US (occurrence: US)
  Receive Date: 20160829
  Receipt Date: 20160829
  Transmission Date: 20161109
  Serious: Yes (Other)
  Sender: FDA-Public Use
  Company Number: US-SA-2016SA154256

PATIENT
  Sex: Female

DRUGS (1)
  1. MULTAQ [Suspect]
     Active Substance: DRONEDARONE
     Indication: CARDIAC PACEMAKER INSERTION
     Route: 065
     Dates: start: 20091214

REACTIONS (3)
  - Lung neoplasm [Not Recovered/Not Resolved]
  - Chest injury [Not Recovered/Not Resolved]
  - Painful respiration [Not Recovered/Not Resolved]
